FAERS Safety Report 23094687 (Version 2)
Quarter: 2023Q4

REPORT INFORMATION
  Report Type: Report from Study
  Country: US (occurrence: US)
  Receive Date: 20231023
  Receipt Date: 20231220
  Transmission Date: 20240110
  Serious: Yes (Other)
  Sender: FDA-Public Use
  Company Number: US-ABBVIE-5345374

PATIENT
  Sex: Female

DRUGS (2)
  1. HUMIRA [Suspect]
     Active Substance: ADALIMUMAB
     Indication: Rheumatoid arthritis
     Dosage: FORM STRENGTH 40 MILLIGRAM?CITRATE FREE
     Route: 058
     Dates: start: 20230605
  2. HUMIRA [Suspect]
     Active Substance: ADALIMUMAB
     Dosage: DRUG END DATE: 2023?FORM STRENGTH 40 MILLIGRAM?CITRATE FREE
     Route: 058
     Dates: start: 20200327

REACTIONS (6)
  - Medical device implantation [Unknown]
  - Back pain [Unknown]
  - Joint range of motion decreased [Unknown]
  - Device fastener issue [Unknown]
  - Procedural pain [Recovering/Resolving]
  - Pain [Unknown]

NARRATIVE: CASE EVENT DATE: 20230101
